FAERS Safety Report 9220813 (Version 1)
Quarter: 2013Q2

REPORT INFORMATION
  Report Type: Other
  Country: US (occurrence: US)
  Receive Date: 20130409
  Receipt Date: 20130409
  Transmission Date: 20140414
  Serious: Yes (Other)
  Sender: FDA-Public Use
  Company Number: US-BRISTOL-MYERS SQUIBB COMPANY-18771667

PATIENT
  Sex: Female

DRUGS (4)
  1. METFORMIN HCL [Suspect]
     Indication: TYPE 2 DIABETES MELLITUS
     Route: 064
  2. GLYBURIDE [Concomitant]
     Indication: TYPE 2 DIABETES MELLITUS
  3. PROTAMINE HCL [Concomitant]
     Indication: TYPE 2 DIABETES MELLITUS
     Dosage: 1DF= 40UNITS AT MORN, 50 UNITS AT NIGHT
  4. INSULIN ASPART [Concomitant]
     Indication: TYPE 2 DIABETES MELLITUS

REACTIONS (2)
  - Amniotic fluid volume decreased [Unknown]
  - Foetal growth restriction [Unknown]
